FAERS Safety Report 4385914-3 (Version None)
Quarter: 2004Q2

REPORT INFORMATION
  Report Type: 
  Country: None (occurrence: None)
  Receive Date: 20040622
  Receipt Date: 20040610
  Transmission Date: 20050107
  Serious: Yes (Hospitalization)
  Sender: FDA-Public Use
  Company Number: 2004032655

PATIENT
  Age: 72 Year
  Sex: Female
  Weight: 56.6996 kg

DRUGS (8)
  1. TIKOSYN [Suspect]
     Indication: ATRIAL FIBRILLATION
     Dosage: 1000 MCG (500 MCG, 2 IN 1D), ORAL
     Route: 048
     Dates: start: 20031001
  2. TIKOSYN [Suspect]
     Indication: ILL-DEFINED DISORDER
     Dosage: 1000 MCG (500 MCG, 2 IN 1D), ORAL
     Route: 048
     Dates: start: 20031001
  3. FLUCONAZOLE [Suspect]
     Indication: FUNGAL INFECTION
     Dates: start: 20040506
  4. DILTIAZEM [Concomitant]
  5. LEVOTHYROXINE SODIUM [Concomitant]
  6. SALBUTAMOL (SALBUTAMOL) [Concomitant]
  7. IPRATROPIUM BROMIDE [Concomitant]
  8. WARFARIN SODIUM [Concomitant]

REACTIONS (10)
  - CHEST PAIN [None]
  - DRUG INTERACTION [None]
  - FUNGAL INFECTION [None]
  - GASTROOESOPHAGEAL REFLUX DISEASE [None]
  - LUNG DISORDER [None]
  - NAUSEA [None]
  - PALPITATIONS [None]
  - PYREXIA [None]
  - SINUSITIS [None]
  - WHEEZING [None]
